FAERS Safety Report 7323077-2 (Version None)
Quarter: 2011Q1

REPORT INFORMATION
  Report Type: 
  Country: None (occurrence: None)
  Receive Date: 20110301
  Receipt Date: 20110224
  Transmission Date: 20110831
  Serious: Yes (Hospitalization)
  Sender: FDA-Public Use
  Company Number: US-BRISTOL-MYERS SQUIBB COMPANY-15568116

PATIENT
  Age: 78 Year
  Sex: Male
  Weight: 102 kg

DRUGS (2)
  1. CARBOPLATIN [Suspect]
     Indication: NON-SMALL CELL LUNG CANCER
     Dosage: AUC=2 WEEKLY ON DAYS 1, 8, 15, 22, 29 AND 36 OF CONCURRENT THERAPY, THEN AUC=6 DAYS 64 AND 85.
     Dates: start: 20101013, end: 20110105
  2. TAXOL [Suspect]
     Indication: NON-SMALL CELL LUNG CANCER
     Dosage: 45 MG/M2 WEEKLY DAYS 1, 8, 15, 22, 29 AND 36 OF CONCURRENT THERAPY, THEN 200 MG/M2 DAYS 64 AND 85.
     Dates: start: 20101013, end: 20110105

REACTIONS (4)
  - DYSPNOEA [None]
  - HAEMOGLOBIN DECREASED [None]
  - COUGH [None]
  - FATIGUE [None]
